FAERS Safety Report 26052248 (Version 1)
Quarter: 2025Q4

REPORT INFORMATION
  Report Type: Spontaneous
  Country: CN (occurrence: CN)
  Receive Date: 20251117
  Receipt Date: 20251117
  Transmission Date: 20260117
  Serious: Yes (Other)
  Sender: NOVARTIS
  Company Number: CN-002147023-NVSC2025CN172497

PATIENT
  Age: 51 Year
  Sex: Female
  Weight: 55 kg

DRUGS (3)
  1. CAPMATINIB [Suspect]
     Active Substance: CAPMATINIB
     Indication: Lung neoplasm malignant
     Dosage: 400 MG, BID
     Route: 048
     Dates: start: 20250320, end: 20250420
  2. TRASTUZUMAB [Suspect]
     Active Substance: TRASTUZUMAB
     Indication: Lung neoplasm malignant
     Dosage: 250 MG, QD
     Route: 042
     Dates: start: 20250930, end: 20250930
  3. AFATINIB [Suspect]
     Active Substance: AFATINIB
     Indication: Lung neoplasm malignant
     Dosage: 40 MG, QD
     Route: 048
     Dates: start: 20250320, end: 20250420

REACTIONS (9)
  - Diarrhoea [Not Recovered/Not Resolved]
  - Neutrophil count decreased [Not Recovered/Not Resolved]
  - Metastases to central nervous system [Not Recovered/Not Resolved]
  - Asthenia [Not Recovered/Not Resolved]
  - Decreased appetite [Not Recovered/Not Resolved]
  - Nausea [Not Recovered/Not Resolved]
  - Vomiting [Not Recovered/Not Resolved]
  - Haemoglobin decreased [Not Recovered/Not Resolved]
  - White blood cell count decreased [Not Recovered/Not Resolved]

NARRATIVE: CASE EVENT DATE: 20251012
